FAERS Safety Report 15844482 (Version 1)
Quarter: 2019Q1

REPORT INFORMATION
  Report Type: Spontaneous
  Country: US (occurrence: US)
  Receive Date: 20190118
  Receipt Date: 20190118
  Transmission Date: 20190417
  Serious: No
  Sender: FDA-Public Use
  Company Number: US-LANNETT COMPANY, INC.-US-2018LAN000490

PATIENT
  Age: 3 Month
  Sex: Male

DRUGS (1)
  1. RANITIDINE HYDROCHLORIDE. [Suspect]
     Active Substance: RANITIDINE HYDROCHLORIDE
     Indication: GASTROOESOPHAGEAL REFLUX DISEASE
     Dosage: 1 ML, TID
     Route: 048
     Dates: start: 20180212

REACTIONS (2)
  - Hypersensitivity [Recovering/Resolving]
  - Eczema infected [Recovering/Resolving]

NARRATIVE: CASE EVENT DATE: 20180213
